FAERS Safety Report 19729211 (Version 1)
Quarter: 2021Q3

REPORT INFORMATION
  Report Type: Spontaneous
  Country: DE (occurrence: DE)
  Receive Date: 20210820
  Receipt Date: 20210820
  Transmission Date: 20211014
  Serious: Yes (Hospitalization, Other)
  Sender: FDA-Public Use
  Company Number: DE-JNJFOC-20210832888

PATIENT
  Age: 79 Year
  Sex: Male

DRUGS (2)
  1. COVID?19 VACCINE NOS. [Suspect]
     Active Substance: COVID-19 VACCINE NOS
     Indication: COVID-19 IMMUNISATION
     Dosage: DOSE 1, SINGLE; IN TOTAL
     Route: 065
     Dates: start: 20210427, end: 20210427
  2. IBUPROFEN. [Suspect]
     Active Substance: IBUPROFEN
     Indication: PRODUCT USED FOR UNKNOWN INDICATION
     Dosage: UNK
     Route: 065

REACTIONS (5)
  - Intervertebral discitis [Unknown]
  - Thrombocytopenia [Unknown]
  - Sepsis [Unknown]
  - Renal failure [Unknown]
  - Urinary tract infection [Unknown]

NARRATIVE: CASE EVENT DATE: 20210603
